FAERS Safety Report 9717056 (Version 1)
Quarter: 2013Q4

REPORT INFORMATION
  Report Type: Spontaneous
  Country: US (occurrence: US)
  Receive Date: 20131127
  Receipt Date: 20131127
  Transmission Date: 20140711
  Serious: No
  Sender: FDA-Public Use
  Company Number: US-GILEAD-2009-0020796

PATIENT
  Sex: Female
  Weight: 92.99 kg

DRUGS (10)
  1. LETAIRIS [Suspect]
     Indication: PULMONARY ARTERIAL HYPERTENSION
     Route: 048
     Dates: start: 20080218
  2. VIAGRA [Concomitant]
  3. COUMADIN [Concomitant]
  4. SPIRONOLACTONE [Concomitant]
  5. DILTIAZEM [Concomitant]
  6. LANOXIN [Concomitant]
  7. FAMVIR [Concomitant]
  8. TYLENOL [Concomitant]
  9. MULTIVITAMINS [Concomitant]
  10. CALCIUM [Concomitant]

REACTIONS (1)
  - Fluid retention [Unknown]
